FAERS Safety Report 17648458 (Version 1)
Quarter: 2020Q2

REPORT INFORMATION
  Report Type: Spontaneous
  Country: CH (occurrence: CH)
  Receive Date: 20200408
  Receipt Date: 20200408
  Transmission Date: 20200713
  Serious: Yes (Death, Hospitalization)
  Sender: FDA-Public Use
  Company Number: CH-009507513-2004CHE000153

PATIENT
  Age: 64 Year
  Sex: Male

DRUGS (22)
  1. VIDAZA [Suspect]
     Active Substance: AZACITIDINE
     Dosage: FROM 09-DEC-2019 TO 13-DEC-2019: 1ST GRAFT VERSUS HOST DISEASE (GVHD) CYCLE OF AZACITIDINE (VIDAZA)
     Dates: start: 20191209, end: 20191213
  2. FLUDARABINE PHOSPHATE. [Suspect]
     Active Substance: FLUDARABINE PHOSPHATE
     Dosage: UNK
  3. ESOMEP [Concomitant]
     Active Substance: ESOMEPRAZOLE
     Dosage: 20 MILLIGRAM, QD
  4. MAGNESIOCARD [Concomitant]
     Active Substance: MAGNESIUM ASPARTATE HYDROCHLORIDE
     Dosage: 10 MILLIMOLE, Q8H
  5. MYCOPHENOLATE MOFETIL. [Suspect]
     Active Substance: MYCOPHENOLATE MOFETIL
     Dosage: ON 12-SEP-2019: ALLOGENIC HEMATOPOIETIC STEM CELL TRANSPLANT (HSCT) WITH PERIPHERAL BLOOD STEM CELLS
     Dates: start: 201909, end: 201909
  6. COVERSUM N [Concomitant]
     Active Substance: PERINDOPRIL
     Dosage: 2.5 MILLIGRAM, UNK
  7. BUSULFAN. [Suspect]
     Active Substance: BUSULFAN
     Dosage: ON 12-SEP-2019: ALLOGENIC HEMATOPOIETIC STEM CELL TRANSPLANT (HSCT) WITH PERIPHERAL BLOOD STEM CELLS
     Dates: start: 201909, end: 201909
  8. CYCLOPHOSPHAMIDE. [Suspect]
     Active Substance: CYCLOPHOSPHAMIDE
     Dosage: ON 12-SEP-2019: ALLOGENIC HEMATOPOIETIC STEM CELL TRANSPLANT (HSCT) WITH PERIPHERAL BLOOD STEM CELLS
     Dates: start: 201909, end: 201909
  9. GRANULOCYTE-MACROPHAGE COLONY STIMULATING FACTOR (UNSPECIFIED) [Suspect]
     Active Substance: GRANULOCYTE-MACROPHAGE COLONY-STIMULATING FACTOR
     Dosage: ON 12-SEP-2019: ALLOGENIC HEMATOPOIETIC STEM CELL TRANSPLANT (HSCT) WITH PERIPHERAL BLOOD STEM CELLS
     Dates: start: 201909, end: 201909
  10. NOPIL [Concomitant]
     Active Substance: SULFAMETHOXAZOLE\TRIMETHOPRIM
     Dosage: 800 MILLIGRAM, QOD
  11. PRADIF [Concomitant]
     Active Substance: TAMSULOSIN HYDROCHLORIDE
     Dosage: 0.4 MILLIGRAM, QD
  12. AMLODIPINE [Concomitant]
     Active Substance: AMLODIPINE BESYLATE
     Dosage: 5 MILLIGRAM, QD
     Dates: start: 20191209
  13. BUSCOPAN [Concomitant]
     Active Substance: BUTYLSCOPOLAMINE BROMIDE
     Dosage: AS NECESSARY
  14. VALTREX [Concomitant]
     Active Substance: VALACYCLOVIR HYDROCHLORIDE
     Dosage: 500 MILLIGRAM, Q12H
  15. NOXAFIL [Suspect]
     Active Substance: POSACONAZOLE
     Dosage: 100 MILLIGRAM, Q8H
     Route: 048
  16. CYCLOSPORINE. [Suspect]
     Active Substance: CYCLOSPORINE
     Dosage: ON 12-SEP-2019: ALLOGENIC HEMATOPOIETIC STEM CELL TRANSPLANT (HSCT) WITH PERIPHERAL BLOOD STEM CELLS
     Dates: start: 201909, end: 201909
  17. THIOTEPA. [Suspect]
     Active Substance: THIOTEPA
     Dosage: ON 12-SEP-2019: ALLOGENIC HEMATOPOIETIC STEM CELL TRANSPLANT (HSCT) WITH PERIPHERAL BLOOD STEM CELLS
     Dates: start: 201909, end: 201909
  18. SANDIMMUN [Concomitant]
     Active Substance: CYCLOSPORINE
     Dosage: 25 MILLIGRAM, QD
     Dates: end: 20191212
  19. CONCOR [Concomitant]
     Active Substance: BISOPROLOL FUMARATE
     Dosage: 2.5 MILLIGRAM, QD
  20. CHOLECALCIFEROL [Concomitant]
     Active Substance: CHOLECALCIFEROL
     Dosage: 1.5 MILLILITER, QW
  21. XYZAL [Concomitant]
     Active Substance: LEVOCETIRIZINE DIHYDROCHLORIDE
     Dosage: AN UNKNOWN DATE IN DECEMBER 2019LEVOCETIRIZINE DIHYDROCHLORIDE (XYZAL) AND PREDNISOLONE, STOPPED ON
     Dates: start: 201912, end: 20191222
  22. PREDNISOLONE ACETATE. [Concomitant]
     Active Substance: PREDNISOLONE ACETATE
     Dosage: AN UNKNOWN DATE IN DECEMBER 2019LEVOCETIRIZINE DIHYDROCHLORIDE (XYZAL) AND PREDNISOLONE, STOPPED ON
     Dates: start: 201912, end: 20191222

REACTIONS (2)
  - Pulmonary alveolar haemorrhage [Recovering/Resolving]
  - Diffuse alveolar damage [Fatal]

NARRATIVE: CASE EVENT DATE: 20191002
